FAERS Safety Report 6415654-8 (Version None)
Quarter: 2009Q4

REPORT INFORMATION
  Report Type: 
  Country: None (occurrence: None)
  Receive Date: 20091027
  Receipt Date: 20091019
  Transmission Date: 20100525
  Serious: Yes (Other)
  Sender: FDA-Public Use
  Company Number: GB-ROCHE-663586

PATIENT
  Age: 20 Year
  Sex: Male

DRUGS (1)
  1. TAMIFLU [Suspect]
     Dosage: DRUG WITHDRAWN
     Route: 065
     Dates: start: 20090916, end: 20090918

REACTIONS (2)
  - BLISTER [None]
  - RASH GENERALISED [None]
